FAERS Safety Report 6678828-7 (Version None)
Quarter: 2010Q2

REPORT INFORMATION
  Report Type: 
  Country: None (occurrence: None)
  Receive Date: 20100402
  Receipt Date: 20090817
  Transmission Date: 20101027
  Serious: No
  Sender: FDA-Public Use
  Company Number: 2009-00507

PATIENT
  Age: 52 Year
  Sex: Female
  Weight: 90.7194 kg

DRUGS (7)
  1. ZICAM EXTREME CONGESTION RELIEF [Suspect]
     Dosage: 3 OR 4 TIMES
     Dates: start: 20080801, end: 20080801
  2. ACTOS [Concomitant]
  3. GLIPIZIDE [Concomitant]
  4. METFORMIN [Concomitant]
  5. SIMVASTATIN [Concomitant]
  6. CALCIUM WITH VITAMIN D [Concomitant]
  7. LOVAZA [Concomitant]

REACTIONS (1)
  - ANOSMIA [None]
